FAERS Safety Report 20998803 (Version 1)
Quarter: 2022Q2

REPORT INFORMATION
  Report Type: Spontaneous
  Country: US (occurrence: US)
  Receive Date: 20220623
  Receipt Date: 20220623
  Transmission Date: 20220721
  Serious: Yes (Other)
  Sender: FDA-Public Use
  Company Number: US-BioDelivery Sciences International-2022BDSI0175

PATIENT
  Age: 70 Year
  Sex: Male
  Weight: 73.094 kg

DRUGS (5)
  1. BELBUCA [Suspect]
     Active Substance: BUPRENORPHINE HYDROCHLORIDE
     Indication: Pain
     Route: 002
     Dates: start: 20220414
  2. BELBUCA [Suspect]
     Active Substance: BUPRENORPHINE HYDROCHLORIDE
     Indication: Breakthrough pain
     Dosage: ONE FILM A DAY, AS NEEDED.
     Route: 002
     Dates: start: 20220414
  3. MODERNA COVID-19 VACCINE [Suspect]
     Active Substance: ELASOMERAN
     Indication: COVID-19 immunisation
     Dosage: UNKNOWN; UNKNOWN
     Route: 065
     Dates: start: 20220429, end: 20220429
  4. HYDROCORTISONE [Concomitant]
     Active Substance: HYDROCORTISONE
     Indication: Adrenal disorder
     Route: 065
  5. LOSARTAN [Concomitant]
     Active Substance: LOSARTAN
     Indication: Hypertension
     Route: 065

REACTIONS (11)
  - Drug withdrawal syndrome [Recovered/Resolved]
  - Product prescribing error [Unknown]
  - Breakthrough pain [Unknown]
  - Therapeutic response decreased [Unknown]
  - Myalgia [Recovered/Resolved]
  - Off label use [Unknown]
  - Pyrexia [Recovered/Resolved]
  - Chills [Recovered/Resolved]
  - Insomnia [Recovered/Resolved]
  - Oral administration complication [Unknown]
  - Product solubility abnormal [Unknown]

NARRATIVE: CASE EVENT DATE: 20220401
